FAERS Safety Report 11082866 (Version 1)
Quarter: 2015Q2

REPORT INFORMATION
  Report Type: Report from Study
  Country: US (occurrence: US)
  Receive Date: 20150501
  Receipt Date: 20150501
  Transmission Date: 20150821
  Serious: No
  Sender: FDA-Public Use
  Company Number: US-ABBVIE-14P-163-1300268-00

PATIENT
  Age: 47 Year
  Sex: Male
  Weight: 158.9 kg

DRUGS (13)
  1. ANDROGEL [Suspect]
     Active Substance: TESTOSTERONE
     Indication: BLOOD TESTOSTERONE DECREASED
     Route: 061
     Dates: start: 20140715, end: 20141016
  2. ALLOPURINOL. [Concomitant]
     Active Substance: ALLOPURINOL
     Indication: GOUT
  3. NUVIGIL [Concomitant]
     Active Substance: ARMODAFINIL
     Indication: FATIGUE
  4. METFORMIN [Concomitant]
     Active Substance: METFORMIN HYDROCHLORIDE
     Indication: DIABETES MELLITUS
  5. INDOMETHACIN. [Concomitant]
     Active Substance: INDOMETHACIN
     Indication: GOUT
  6. ZONEGRAN [Concomitant]
     Active Substance: ZONISAMIDE
     Indication: MIGRAINE
  7. ANDROGEL [Suspect]
     Active Substance: TESTOSTERONE
     Route: 061
     Dates: start: 20141017
  8. ZOLOFT [Concomitant]
     Active Substance: SERTRALINE HYDROCHLORIDE
     Indication: DEPRESSION
  9. LEVOTHYROXIN [Concomitant]
     Active Substance: LEVOTHYROXINE
     Indication: RADIOTHERAPY TO THYROID
  10. OXYBUTYNIN [Concomitant]
     Active Substance: OXYBUTYNIN
     Indication: URINARY INCONTINENCE
  11. GABAPENTIN. [Concomitant]
     Active Substance: GABAPENTIN
     Indication: NEURALGIA
  12. BACLOFEN. [Concomitant]
     Active Substance: BACLOFEN
     Indication: MUSCLE SPASMS
  13. AVONEX [Concomitant]
     Active Substance: INTERFERON BETA-1A
     Indication: MULTIPLE SCLEROSIS

REACTIONS (2)
  - Blood pressure increased [Not Recovered/Not Resolved]
  - Blood testosterone decreased [Unknown]

NARRATIVE: CASE EVENT DATE: 201410
